FAERS Safety Report 5567685-8 (Version None)
Quarter: 2007Q4

REPORT INFORMATION
  Report Type: 
  Country: None (occurrence: None)
  Receive Date: 20071217
  Receipt Date: 20071203
  Transmission Date: 20080405
  Serious: Yes (Other)
  Sender: FDA-Public Use
  Company Number: 2007337034

PATIENT

DRUGS (1)
  1. PHENYLEPHRINE (PHENYLEPHRINE) [Suspect]

REACTIONS (1)
  - MACULAR DEGENERATION [None]
